FAERS Safety Report 9471420 (Version 1)
Quarter: 2013Q3

REPORT INFORMATION
  Report Type: Spontaneous
  Country: US (occurrence: US)
  Receive Date: 20130822
  Receipt Date: 20130822
  Transmission Date: 20140515
  Serious: Yes (Other)
  Sender: FDA-Public Use
  Company Number: CHPA2013US013045

PATIENT
  Age: 68 Year
  Sex: Female

DRUGS (2)
  1. GAS-X EXTSTR CHEWABLE TABS CHERRY CREME [Suspect]
     Indication: IMPAIRED GASTRIC EMPTYING
     Dosage: 1 TO 4 DF, PRN
     Route: 048
  2. MAALOX UNKNOWN [Suspect]
     Dosage: UNK, UNK

REACTIONS (5)
  - Impaired gastric emptying [Not Recovered/Not Resolved]
  - Coeliac disease [Not Recovered/Not Resolved]
  - Off label use [Unknown]
  - Therapeutic response decreased [Unknown]
  - Therapeutic response unexpected [Unknown]
